FAERS Safety Report 9093269 (Version 1)
Quarter: 2013Q1

REPORT INFORMATION
  Report Type: Spontaneous
  Country: US (occurrence: None)
  Receive Date: 20130122
  Receipt Date: 20130122
  Transmission Date: 20140127
  Serious: Yes (Death)
  Sender: FDA-Public Use
  Company Number: 1552889

PATIENT
  Age: 33 Year
  Sex: Female

DRUGS (6)
  1. DIAZEPAM [Suspect]
     Dosage: NOT REPORTED,  UNKNOWN,  UNKNOWN?UNKNOWN
  2. FENTANYL CITRATE [Suspect]
     Dosage: NOT REPORTED,  UNKNOWN,  UNKNOWN?UNKNOWN
  3. OXYCODONE [Suspect]
     Dosage: NOT REPORTED,  UNKNOWN,  UNKNOWN?UNKNOWN
  4. CITALOPRAM [Suspect]
     Dosage: NOT REPORTED,  UNKNOWN,  UNKNOWN?UNKNOWN
  5. ACETAMINOPHEN / HYDROCODONE [Suspect]
     Dosage: NOT REPORTED,  UNKNOWN,  UNKNOWN?UNKNOWN
  6. ALPRAZOLAM [Suspect]
     Dosage: NOT REPORTED,  UNKNOWN,  UNKNOWN?UNKNOWN

REACTIONS (3)
  - Drug abuse [None]
  - Self-medication [None]
  - Toxicity to various agents [None]
